FAERS Safety Report 24357836 (Version 1)
Quarter: 2024Q3

REPORT INFORMATION
  Report Type: Spontaneous
  Country: IT (occurrence: IT)
  Receive Date: 20240924
  Receipt Date: 20240924
  Transmission Date: 20241017
  Serious: Yes (Hospitalization, Other)
  Sender: GLAND PHARMA
  Company Number: IT-GLANDPHARMA-IT-2024GLNLIT00758

PATIENT
  Age: 48 Year
  Sex: Male

DRUGS (1)
  1. AMIODARONE HYDROCHLORIDE [Suspect]
     Active Substance: AMIODARONE HYDROCHLORIDE
     Indication: Product used for unknown indication
     Route: 065

REACTIONS (4)
  - Parathyroid tumour benign [Recovering/Resolving]
  - Toxic nodular goitre [Recovering/Resolving]
  - Hyperthyroidism [Recovering/Resolving]
  - Hyperparathyroidism primary [Recovering/Resolving]
